FAERS Safety Report 16702650 (Version 1)
Quarter: 2019Q3

REPORT INFORMATION
  Report Type: Spontaneous
  Country: US (occurrence: US)
  Receive Date: 20190628
  Receipt Date: 20190628
  Transmission Date: 20191004
  Serious: No
  Sender: FDA-Public Use
  Company Number: None

PATIENT
  Age: 49 Year
  Sex: Female

DRUGS (1)
  1. ENTYVIO [Suspect]
     Active Substance: VEDOLIZUMAB
     Dates: start: 20190628

REACTIONS (4)
  - Dyspnoea [None]
  - Flushing [None]
  - Chest discomfort [None]
  - Heart rate decreased [None]

NARRATIVE: CASE EVENT DATE: 20190628
